FAERS Safety Report 4723196-0 (Version None)
Quarter: 2005Q3

REPORT INFORMATION
  Report Type: 
  Country: None (occurrence: None)
  Receive Date: 20050722
  Receipt Date: 20050404
  Transmission Date: 20060218
  Serious: Yes (Other)
  Sender: FDA-Public Use
  Company Number: GB-ABBOTT-05P-167-0296273-00

PATIENT
  Age: 32 Year
  Sex: Male

DRUGS (3)
  1. EPILIM [Suspect]
     Indication: DRUG USE FOR UNKNOWN INDICATION
  2. EPILIM [Suspect]
     Route: 048
  3. EPILIM [Suspect]
     Route: 048

REACTIONS (3)
  - CONVULSION [None]
  - DEAFNESS [None]
  - DRUG LEVEL INCREASED [None]
